FAERS Safety Report 7961365-7 (Version None)
Quarter: 2011Q4

REPORT INFORMATION
  Report Type: 
  Country: None (occurrence: None)
  Receive Date: 20111121
  Receipt Date: 20110930
  Transmission Date: 20120403
  Serious: No
  Sender: FDA-Public Use
  Company Number: 1000023457

PATIENT
  Age: 40 Year
  Sex: Female

DRUGS (3)
  1. VIIBRYD [Suspect]
     Indication: DEPRESSION
     Dosage: 10;20;40  MG (10 MG, 1 IN 1 D), ORAL
     Route: 048
     Dates: start: 20110827, end: 20110902
  2. VIIBRYD [Suspect]
     Indication: DEPRESSION
     Dosage: 10;20;40  MG (10 MG, 1 IN 1 D), ORAL
     Route: 048
     Dates: start: 20110903, end: 20110909
  3. VIIBRYD [Suspect]
     Indication: DEPRESSION
     Dosage: 10;20;40  MG (10 MG, 1 IN 1 D), ORAL
     Route: 048
     Dates: start: 20110910, end: 20110901

REACTIONS (1)
  - HALLUCINATION [None]
